FAERS Safety Report 9892678 (Version 1)
Quarter: 2014Q1

REPORT INFORMATION
  Report Type: Spontaneous
  Country: US (occurrence: US)
  Receive Date: 20140212
  Receipt Date: 20140212
  Transmission Date: 20141002
  Serious: Yes (Hospitalization, Other)
  Sender: FDA-Public Use
  Company Number: US-BAXTER-2014BAX006911

PATIENT
  Age: 64 Year
  Sex: Male

DRUGS (5)
  1. CYCLOPHOSPHAMIDE FOR INJECTION, USP [Suspect]
     Indication: MYCOSIS FUNGOIDES
     Route: 065
  2. DOXORUBICIN [Suspect]
     Indication: MYCOSIS FUNGOIDES
     Route: 065
  3. VINCRISTINE [Suspect]
     Indication: MYCOSIS FUNGOIDES
     Route: 065
  4. PREDNISONE [Suspect]
     Indication: MYCOSIS FUNGOIDES
     Route: 065
  5. METHOTREXATE [Suspect]
     Indication: MYCOSIS FUNGOIDES
     Route: 065

REACTIONS (4)
  - Dermatitis exfoliative [Recovering/Resolving]
  - Thrombophlebitis septic [Recovered/Resolved]
  - Osteomyelitis [Recovered/Resolved]
  - Staphylococcal infection [Recovered/Resolved]
